FAERS Safety Report 16350609 (Version 3)
Quarter: 2019Q4

REPORT INFORMATION
  Report Type: Report from Study
  Country: None (occurrence: DE)
  Receive Date: 20190524
  Receipt Date: 20191115
  Transmission Date: 20200122
  Serious: Yes (Hospitalization)
  Sender: FDA-Public Use
  Company Number: DE-ABBVIE-19K-062-2793844-00

PATIENT
  Age: 36 Year
  Sex: Female
  Weight: 68 kg

DRUGS (8)
  1. HUMIRA [Suspect]
     Active Substance: ADALIMUMAB
     Indication: PSORIASIS
     Route: 058
     Dates: start: 20180411, end: 201809
  2. FUMARATE [Concomitant]
     Indication: PSORIASIS
  3. MESALAZIN [Concomitant]
     Active Substance: MESALAMINE
     Indication: PSEUDOPOLYP
  4. LYRICA [Concomitant]
     Active Substance: PREGABALIN
     Indication: ULCER
     Dates: start: 20190506
  5. LYRICA [Concomitant]
     Active Substance: PREGABALIN
     Indication: PSEUDOPOLYP
  6. LYRICA [Concomitant]
     Active Substance: PREGABALIN
     Indication: FIBROSIS
  7. MESALAZIN [Concomitant]
     Active Substance: MESALAMINE
     Indication: ULCER
     Dosage: 1200 MG 2-0-2
     Dates: start: 20190506
  8. MESALAZIN [Concomitant]
     Active Substance: MESALAMINE
     Indication: FIBROSIS

REACTIONS (16)
  - Hemianaesthesia [Unknown]
  - Ulcer [Unknown]
  - Abdominal pain upper [Unknown]
  - Multiple sclerosis relapse [Not Recovered/Not Resolved]
  - Central nervous system lesion [Unknown]
  - Hypoaesthesia [Unknown]
  - Pseudopolyp [Unknown]
  - Diarrhoea [Unknown]
  - Acute disseminated encephalomyelitis [Unknown]
  - Feeling hot [Unknown]
  - Paraesthesia [Unknown]
  - Intersection syndrome [Unknown]
  - Dysaesthesia [Unknown]
  - Fibrosis [Unknown]
  - Flushing [Unknown]
  - Neuropathy peripheral [Recovering/Resolving]

NARRATIVE: CASE EVENT DATE: 201901
